FAERS Safety Report 7522356-3 (Version None)
Quarter: 2011Q2

REPORT INFORMATION
  Report Type: 
  Country: None (occurrence: None)
  Receive Date: 20110603
  Receipt Date: 20110525
  Transmission Date: 20111010
  Serious: Yes (Death)
  Sender: FDA-Public Use
  Company Number: IT-TYCO HEALTHCARE/MALLINCKRODT-T201101135

PATIENT
  Sex: Male

DRUGS (10)
  1. ENOXAPARIN SODIUM [Concomitant]
     Dosage: 2 UNITS
     Route: 058
  2. VENITRIN [Concomitant]
     Route: 062
  3. SPIRIVA [Concomitant]
     Dosage: 1 UNIT
     Route: 048
  4. CLARITHROMYCIN [Suspect]
     Indication: BRONCHOPNEUMONIA
     Dosage: POSOLOGY OF 2 UNITS DAILY
     Route: 042
     Dates: start: 20110511, end: 20110517
  5. NORVASC [Concomitant]
     Dosage: 1 UNIT
     Route: 048
  6. ROCEPHIN [Concomitant]
     Indication: BRONCHOPNEUMONIA
     Dosage: 2 GR
     Route: 042
  7. LASIX [Concomitant]
     Dosage: 2 UNITS
     Route: 042
  8. ANTRA                              /00661201/ [Concomitant]
     Dosage: 2 UNITS
     Route: 048
  9. OPTIRAY 300 [Suspect]
     Indication: COMPUTERISED TOMOGRAM THORAX
     Dosage: 120 ML, SINGLE
     Route: 042
     Dates: start: 20110517, end: 20110517
  10. REPAGLINIDE [Concomitant]
     Dosage: 2 UNITS
     Route: 048

REACTIONS (2)
  - EYE MOVEMENT DISORDER [None]
  - RESPIRATORY ARREST [None]
